FAERS Safety Report 10920591 (Version 2)
Quarter: 2015Q2

REPORT INFORMATION
  Report Type: Report from Study
  Country: CH (occurrence: CH)
  Receive Date: 20150317
  Receipt Date: 20150415
  Transmission Date: 20150821
  Serious: Yes (Hospitalization, Other)
  Sender: FDA-Public Use
  Company Number: PHHO2014CH001702

PATIENT
  Age: 51 Year
  Sex: Male
  Weight: 90 kg

DRUGS (5)
  1. AIN457 [Suspect]
     Active Substance: SECUKINUMAB
     Indication: PSORIASIS
     Dosage: UNK
     Route: 058
     Dates: start: 20130221
  2. COLD CREAM [Concomitant]
     Active Substance: COLD CREAM
     Indication: DRY SKIN
  3. COPPER W/ZINC [Concomitant]
     Indication: DRY SKIN
     Dosage: UNK
     Route: 061
     Dates: start: 20131216
  4. COPPER W/ZINC [Concomitant]
     Indication: PRURITUS
  5. COLD CREAM [Concomitant]
     Active Substance: COLD CREAM
     Indication: PRURITUS
     Dosage: UNK
     Route: 061
     Dates: start: 20131223

REACTIONS (1)
  - Erysipelas [Recovered/Resolved]

NARRATIVE: CASE EVENT DATE: 20140120
